FAERS Safety Report 4914341-2 (Version None)
Quarter: 2006Q1

REPORT INFORMATION
  Report Type: 
  Country: None (occurrence: None)
  Receive Date: 20060213
  Receipt Date: 20060127
  Transmission Date: 20060701
  Serious: Yes (Hospitalization)
  Sender: FDA-Public Use
  Company Number: 13351

PATIENT
  Age: 63 Year
  Sex: Male

DRUGS (8)
  1. LEUCOVORIN CALCIUM [Suspect]
     Indication: COLORECTAL CANCER METASTATIC
     Dosage: 400 MG/M2 PER_CYCLE
     Dates: start: 20050525, end: 20051005
  2. FLUOROURACIL [Suspect]
     Indication: COLORECTAL CANCER METASTATIC
     Dosage: 400 MG/M2 PER_CYCLE IV
     Route: 042
     Dates: start: 20050525, end: 20051005
  3. FLUOROURACIL [Suspect]
     Indication: COLORECTAL CANCER METASTATIC
     Dosage: 2400 MG/M2 PER_CYCLE IV
     Route: 042
     Dates: start: 20050525, end: 20051005
  4. CETUXIMAB [Suspect]
     Indication: COLORECTAL CANCER METASTATIC
     Dosage: 250 MG/M2 WEEKLY IV
     Route: 042
     Dates: start: 20050525, end: 20051005
  5. OXALIPLATIN [Suspect]
     Indication: COLORECTAL CANCER METASTATIC
     Dosage: 85 MG/M2 PER_CYCLE IV
     Route: 042
     Dates: start: 20050525, end: 20051005
  6. BENADRYL [Concomitant]
  7. ZOFRAN [Concomitant]
  8. HEXADROL [Concomitant]

REACTIONS (2)
  - CENTRAL LINE INFECTION [None]
  - STAPHYLOCOCCAL INFECTION [None]
